FAERS Safety Report 5273656-1 (Version None)
Quarter: 2007Q1

REPORT INFORMATION
  Report Type: 
  Country: None (occurrence: None)
  Receive Date: 20070321
  Receipt Date: 20070321
  Transmission Date: 20070707
  Serious: Yes (Hospitalization)
  Sender: FDA-Public Use
  Company Number: None

PATIENT
  Age: 70 Year
  Sex: Male
  Weight: 96.8 kg

DRUGS (1)
  1. MELOXICAM [Suspect]
     Dosage: 15 MG  PO  DAILY

REACTIONS (2)
  - HAEMATEMESIS [None]
  - MELAENA [None]
